FAERS Safety Report 7324690-9 (Version None)
Quarter: 2011Q1

REPORT INFORMATION
  Report Type: 
  Country: None (occurrence: None)
  Receive Date: 20110301
  Receipt Date: 20110222
  Transmission Date: 20110831
  Serious: Yes (Death, Life-Threatening, Hospitalization, Other)
  Sender: FDA-Public Use
  Company Number: DE-TEVA-268075GER

PATIENT
  Age: 75 Year
  Sex: Female
  Weight: 65 kg

DRUGS (4)
  1. AMIODARONE HCL [Suspect]
     Route: 048
     Dates: start: 20101106, end: 20101107
  2. AMIODARONE HCL [Suspect]
     Indication: ATRIAL FIBRILLATION
     Route: 048
     Dates: start: 20090216, end: 20101107
  3. AMIODARONE HCL [Suspect]
     Route: 048
     Dates: start: 20101106, end: 20101107
  4. AMIODARONE HCL [Suspect]
     Indication: ATRIAL FIBRILLATION
     Route: 048
     Dates: start: 20090216, end: 20101107

REACTIONS (3)
  - TORSADE DE POINTES [None]
  - LACTIC ACIDOSIS [None]
  - LONG QT SYNDROME [None]
